FAERS Safety Report 23326690 (Version 1)
Quarter: 2023Q4

REPORT INFORMATION
  Report Type: Spontaneous
  Country: US (occurrence: US)
  Receive Date: 20231221
  Receipt Date: 20231221
  Transmission Date: 20240110
  Serious: No
  Sender: FDA-Public Use
  Company Number: US-PFIZER INC-202300449753

PATIENT
  Age: 67 Year
  Sex: Female
  Weight: 72.57 kg

DRUGS (2)
  1. PAXLOVID [Suspect]
     Active Substance: NIRMATRELVIR\RITONAVIR
     Indication: COVID-19 treatment
     Dosage: UNK, 2X/DAY
     Route: 048
  2. PRAZOSIN [Concomitant]
     Active Substance: PRAZOSIN
     Indication: Blood pressure abnormal

REACTIONS (9)
  - Rash [Unknown]
  - Urticaria [Unknown]
  - Pruritus [Unknown]
  - Abdominal discomfort [Unknown]
  - Change of bowel habit [Unknown]
  - Insomnia [Unknown]
  - Middle insomnia [Unknown]
  - Dysgeusia [Unknown]
  - Dry mouth [Unknown]
